FAERS Safety Report 10436491 (Version 2)
Quarter: 2014Q3

REPORT INFORMATION
  Report Type: Spontaneous
  Country: US (occurrence: US)
  Receive Date: 20140908
  Receipt Date: 20140908
  Transmission Date: 20150326
  Serious: No
  Sender: FDA-Public Use
  Company Number: US-BRISTOL-MYERS SQUIBB COMPANY-19494772

PATIENT
  Age: 47 Year
  Sex: Female
  Weight: 59.86 kg

DRUGS (3)
  1. ABILIFY [Suspect]
     Active Substance: ARIPIPRAZOLE
     Indication: BIPOLAR I DISORDER
     Dosage: 1MG IN 2ND WEEK 2MG
     Route: 048
     Dates: start: 20131003, end: 20131006
  2. LAMICTAL [Suspect]
     Active Substance: LAMOTRIGINE
     Dates: start: 20130909
  3. ABILIFY [Suspect]
     Active Substance: ARIPIPRAZOLE
     Indication: POST-TRAUMATIC STRESS DISORDER
     Dosage: 1MG IN 2ND WEEK 2MG
     Route: 048
     Dates: start: 20131003, end: 20131006

REACTIONS (18)
  - Headache [Unknown]
  - Thirst [Unknown]
  - Memory impairment [Unknown]
  - Hunger [Unknown]
  - Asthenia [Unknown]
  - Disturbance in attention [Unknown]
  - Sleep disorder [Not Recovered/Not Resolved]
  - Wrong technique in drug usage process [Unknown]
  - Vision blurred [Unknown]
  - Fatigue [Unknown]
  - Akathisia [Unknown]
  - Nausea [Recovered/Resolved]
  - Urine output increased [Unknown]
  - Rash pruritic [Unknown]
  - Swollen tongue [Unknown]
  - Dizziness [Unknown]
  - Dry mouth [Unknown]
  - Myalgia [Unknown]

NARRATIVE: CASE EVENT DATE: 20131006
